FAERS Safety Report 9735337 (Version 1)
Quarter: 2013Q4

REPORT INFORMATION
  Report Type: Spontaneous
  Country: BR (occurrence: BR)
  Receive Date: 20131206
  Receipt Date: 20131206
  Transmission Date: 20140711
  Serious: Yes (Hospitalization)
  Sender: FDA-Public Use
  Company Number: BR-SA-2013SA124639

PATIENT
  Age: 68 Year
  Sex: Male
  Weight: 74 kg

DRUGS (5)
  1. LANTUS [Suspect]
     Indication: TYPE 2 DIABETES MELLITUS
     Route: 065
     Dates: start: 201302
  2. AAS [Concomitant]
     Indication: CARDIOVASCULAR DISORDER
     Route: 048
     Dates: start: 2011
  3. LOSARTAN [Concomitant]
     Indication: HYPERTENSION
     Dosage: STRENGTH: 25 MG
     Route: 048
     Dates: start: 2011
  4. SELOZOK [Concomitant]
     Indication: CARDIAC DISORDER
     Route: 048
     Dates: start: 2011
  5. CLIKSTAR [Concomitant]
     Indication: DEVICE THERAPY

REACTIONS (8)
  - Hypertension [Recovered/Resolved]
  - Feeling abnormal [Recovered/Resolved]
  - Tremor [Recovered/Resolved]
  - Fall [Unknown]
  - Limb injury [Recovering/Resolving]
  - Pyrexia [Recovering/Resolving]
  - Bedridden [Recovering/Resolving]
  - Haemorrhage [Recovering/Resolving]
